FAERS Safety Report 17882290 (Version 1)
Quarter: 2020Q2

REPORT INFORMATION
  Report Type: Spontaneous
  Country: US (occurrence: US)
  Receive Date: 20200610
  Receipt Date: 20200610
  Transmission Date: 20200714
  Serious: Yes (Hospitalization)
  Sender: FDA-Public Use
  Company Number: US-GILEAD-2020-0470081

PATIENT
  Age: 23 Year
  Sex: Male
  Weight: 53.6 kg

DRUGS (17)
  1. REMDESIVIR. [Suspect]
     Active Substance: REMDESIVIR
     Dosage: 100 MG, QD
     Route: 042
     Dates: start: 20200527, end: 20200531
  2. TOCILIZUMAB. [Concomitant]
     Active Substance: TOCILIZUMAB
  3. ENOXAPARIN [Concomitant]
     Active Substance: ENOXAPARIN
  4. BUMETANIDE. [Concomitant]
     Active Substance: BUMETANIDE
  5. DEXMEDETOMIDINE. [Concomitant]
     Active Substance: DEXMEDETOMIDINE
  6. DOBUTAMINE [Concomitant]
     Active Substance: DOBUTAMINE HYDROCHLORIDE
  7. THIAMINE. [Concomitant]
     Active Substance: THIAMINE
  8. FENTANYL. [Concomitant]
     Active Substance: FENTANYL
  9. REMDESIVIR. [Suspect]
     Active Substance: REMDESIVIR
     Indication: COVID-19
     Dosage: 200 MG, QD
     Route: 042
     Dates: start: 20200526, end: 20200526
  10. CEFEPIME [Concomitant]
     Active Substance: CEFEPIME HYDROCHLORIDE
  11. CLONAZEPAM. [Concomitant]
     Active Substance: CLONAZEPAM
  12. METHYLPREDNISOLONE. [Concomitant]
     Active Substance: METHYLPREDNISOLONE
  13. VANCOMYCIN-MIP [VANCOMYCIN] [Concomitant]
  14. ZINC. [Concomitant]
     Active Substance: ZINC
  15. INSULIN LISPRO [Concomitant]
     Active Substance: INSULIN LISPRO
  16. ACETAMINOPHEN. [Concomitant]
     Active Substance: ACETAMINOPHEN
  17. FAMOTIDINE. [Concomitant]
     Active Substance: FAMOTIDINE

REACTIONS (2)
  - Alanine aminotransferase abnormal [Unknown]
  - Aspartate aminotransferase increased [Unknown]

NARRATIVE: CASE EVENT DATE: 20200601
